FAERS Safety Report 20862997 (Version 1)
Quarter: 2022Q2

REPORT INFORMATION
  Report Type: Spontaneous
  Country: US (occurrence: US)
  Receive Date: 20220523
  Receipt Date: 20220523
  Transmission Date: 20220721
  Serious: Yes (Hospitalization, Other)
  Sender: FDA-Public Use
  Company Number: US-009507513-2205USA005274

PATIENT
  Age: 67 Year
  Sex: Male

DRUGS (1)
  1. VERQUVO [Suspect]
     Active Substance: VERICIGUAT
     Dosage: 2.5 MG ONCE A DAY
     Route: 048
     Dates: start: 20220510

REACTIONS (1)
  - Cholecystitis [Unknown]

NARRATIVE: CASE EVENT DATE: 20220513
